FAERS Safety Report 22093604 (Version 1)
Quarter: 2023Q1

REPORT INFORMATION
  Report Type: Report from Study
  Country: CA (occurrence: CA)
  Receive Date: 20230314
  Receipt Date: 20230314
  Transmission Date: 20230418
  Serious: Yes (Hospitalization, Other)
  Sender: FDA-Public Use
  Company Number: CA-TAKEDA-2022TUS032700

PATIENT
  Age: 58 Year
  Sex: Female

DRUGS (12)
  1. HUMAN IMMUNOGLOBULIN G [Suspect]
     Active Substance: HUMAN IMMUNOGLOBULIN G
     Indication: Primary immunodeficiency syndrome
     Dosage: 8 GRAM, 1/WEEK
     Route: 050
     Dates: start: 20220430
  2. GABAPENTIN [Concomitant]
     Active Substance: GABAPENTIN
  3. DOMPERIDONE [Concomitant]
     Active Substance: DOMPERIDONE
  4. TYLENOL WITH CODEINE [Concomitant]
     Active Substance: ACETAMINOPHEN\CODEINE PHOSPHATE
  5. FENTANYL TRANSDERMAL SYSTEM [Concomitant]
     Active Substance: FENTANYL
  6. BISOPROLOL [Concomitant]
     Active Substance: BISOPROLOL
  7. LANSOPRAZOLE [Concomitant]
     Active Substance: LANSOPRAZOLE
  8. DULOXETINE [Concomitant]
     Active Substance: DULOXETINE
  9. DILTIAZEM [Concomitant]
     Active Substance: DILTIAZEM
  10. ALBUTEROL [Concomitant]
     Active Substance: ALBUTEROL
  11. TRELEGY ELLIPTA [Concomitant]
     Active Substance: FLUTICASONE FUROATE\UMECLIDINIUM BROMIDE\VILANTEROL TRIFENATATE
  12. ARNUITY ELLIPTA [Concomitant]
     Active Substance: FLUTICASONE FUROATE

REACTIONS (3)
  - Pneumonia [Unknown]
  - COVID-19 [Unknown]
  - Inappropriate schedule of product administration [Unknown]

NARRATIVE: CASE EVENT DATE: 20220514
